FAERS Safety Report 8259299-6 (Version None)
Quarter: 2012Q2

REPORT INFORMATION
  Report Type: 
  Country: None (occurrence: None)
  Receive Date: 20120404
  Receipt Date: 20120329
  Transmission Date: 20120825
  Serious: Yes (Hospitalization)
  Sender: FDA-Public Use
  Company Number: US-RB-037174-12

PATIENT
  Age: 19 Year
  Sex: Male

DRUGS (1)
  1. DELSYM [Suspect]
     Indication: PRODUCT USED FOR UNKNOWN INDICATION
     Route: 048
     Dates: start: 20120218

REACTIONS (3)
  - TOXICITY TO VARIOUS AGENTS [None]
  - DYSARTHRIA [None]
  - VISION BLURRED [None]
